FAERS Safety Report 7507051-9 (Version None)
Quarter: 2011Q2

REPORT INFORMATION
  Report Type: 
  Country: None (occurrence: None)
  Receive Date: 20110526
  Receipt Date: 20110513
  Transmission Date: 20111010
  Serious: Yes (Hospitalization)
  Sender: FDA-Public Use
  Company Number: JP-UCBSA-031810

PATIENT
  Sex: Female

DRUGS (20)
  1. CIMZIA [Suspect]
     Indication: RHEUMATOID ARTHRITIS
     Dosage: CDP870-41 STUDY: 200MG (WEEKS 0,2,4 ); 100 MG: WEEKS 6,8,10,12,14,16,18,20,22
     Route: 058
     Dates: start: 20090928, end: 20100120
  2. CARBOCISTEINE [Concomitant]
     Dates: start: 20110407, end: 20110421
  3. APRICOT KERNEL WATER [Concomitant]
     Dates: start: 20110407, end: 20110428
  4. ROSUVASTATIN CALCIUM [Concomitant]
     Dates: start: 20101125
  5. ETODOLAC [Concomitant]
     Dates: start: 20090901
  6. DICLOFENAC SODIUM [Concomitant]
     Dosage: ADEQUATE DOSE
     Dates: start: 20080107
  7. ISONIAZID [Concomitant]
     Dates: start: 20091112
  8. CHERRYBARK EXTRACT_CODEINE PHOSPHATE [Concomitant]
     Dates: start: 20110407, end: 20110428
  9. SIMPLE SYRUP [Concomitant]
     Dates: start: 20110407, end: 20110428
  10. LAFUTIDINE [Concomitant]
     Dates: start: 20041116
  11. CLARITHROMYCIN [Concomitant]
     Dates: start: 20110407, end: 20110421
  12. CIMZIA [Suspect]
     Route: 058
     Dates: start: 20100120, end: 20110414
  13. LANSOPRAZOLE [Concomitant]
     Dates: start: 20041116
  14. LEUCOVORIN CALCIUM [Concomitant]
     Dates: start: 20080808
  15. KETOPROFEN [Concomitant]
     Dosage: ADEQUATE DOSE
     Dates: start: 20080107
  16. SODIUM RISEDRONATE HYDRATE [Concomitant]
     Dates: start: 20090427
  17. RHEUMATREX [Suspect]
     Indication: RHEUMATOID ARTHRITIS
     Route: 048
     Dates: start: 20080222
  18. LOXOPROFEN SODIUM [Concomitant]
     Dates: start: 20090202
  19. METHOTREXATE [Concomitant]
     Dates: start: 20080222
  20. AMBROXOL HYDROCHLORIDE [Concomitant]
     Dates: start: 20110407, end: 20110421

REACTIONS (1)
  - BRONCHOPNEUMONIA [None]
